FAERS Safety Report 10053398 (Version 2)
Quarter: 2014Q2

REPORT INFORMATION
  Report Type: Spontaneous
  Country: US (occurrence: US)
  Receive Date: 20140402
  Receipt Date: 20140402
  Transmission Date: 20141212
  Serious: Yes (Death)
  Sender: FDA-Public Use
  Company Number: US-PFIZER INC-2014061609

PATIENT
  Age: 68 Year
  Sex: Male

DRUGS (6)
  1. ELLENCE [Suspect]
     Indication: METASTATIC GASTRIC CANCER
     Dosage: 105 MG, EVERY 3 WEEKS
     Route: 042
     Dates: start: 20091230, end: 20100324
  2. OXALIPLATIN [Concomitant]
     Dosage: 130 MG/M2, EVERY 3 WEEKS
  3. XELODA [Concomitant]
     Dosage: 625 MG/M2, 2X/DAY
     Route: 048
  4. ZOFRAN [Concomitant]
     Dosage: UNK AS NEEDED
  5. PROTONIX [Concomitant]
     Dosage: UNK
  6. ACTOS [Concomitant]
     Dosage: UNK AS NEEDED

REACTIONS (2)
  - Disease progression [Fatal]
  - Metastatic gastric cancer [Fatal]
